FAERS Safety Report 8104941-3 (Version None)
Quarter: 2012Q1

REPORT INFORMATION
  Report Type: 
  Country: None (occurrence: None)
  Receive Date: 20120201
  Receipt Date: 20120130
  Transmission Date: 20120608
  Serious: Yes (Congenital Anomaly)
  Sender: FDA-Public Use
  Company Number: US-GLAXOSMITHKLINE-A0963952A

PATIENT
  Sex: Female

DRUGS (3)
  1. PAXIL [Suspect]
     Indication: PRODUCT USED FOR UNKNOWN INDICATION
     Route: 064
     Dates: end: 19980101
  2. VISTARIL [Concomitant]
  3. ZOLOFT [Concomitant]
     Dates: start: 19980101

REACTIONS (3)
  - CARDIAC MURMUR [None]
  - SYNCOPE [None]
  - FOETAL EXPOSURE DURING PREGNANCY [None]
